FAERS Safety Report 8214741-1 (Version None)
Quarter: 2012Q1

REPORT INFORMATION
  Report Type: 
  Country: None (occurrence: None)
  Receive Date: 20120316
  Receipt Date: 20120302
  Transmission Date: 20120608
  Serious: Yes (Other)
  Sender: FDA-Public Use
  Company Number: JP-MYLANLABS-2012S1004860

PATIENT
  Age: 72 Year
  Sex: Female

DRUGS (2)
  1. PACLITAXEL [Suspect]
     Indication: UTERINE CANCER
     Dosage: 180 MG/M2 (DE-ALCOHOLISED)
     Route: 065
     Dates: start: 20100101
  2. CARBOPLATIN [Concomitant]
     Indication: UTERINE CANCER
     Dosage: AUC5
     Route: 065
     Dates: start: 20100101

REACTIONS (9)
  - LEUKOPENIA [None]
  - NEUROPATHY PERIPHERAL [None]
  - ANAEMIA [None]
  - HOT FLUSH [None]
  - NAUSEA [None]
  - DECREASED APPETITE [None]
  - ARTHRALGIA [None]
  - FATIGUE [None]
  - MYALGIA [None]
